FAERS Safety Report 25518913 (Version 2)
Quarter: 2025Q3

REPORT INFORMATION
  Report Type: Spontaneous
  Country: US (occurrence: US)
  Receive Date: 20250704
  Receipt Date: 20250711
  Transmission Date: 20251020
  Serious: Yes (Death, Hospitalization)
  Sender: TEVA
  Company Number: US-TEVA-VS-3348354

PATIENT
  Age: 1 Hour

DRUGS (4)
  1. EPINEPHRINE [Suspect]
     Active Substance: EPINEPHRINE
     Indication: Pulmonary haemorrhage neonatal
     Route: 007
  2. COAGULATION FACTOR VIIA RECOMBINANT HUMAN [Suspect]
     Active Substance: COAGULATION FACTOR VIIA RECOMBINANT HUMAN
     Indication: Pulmonary haemorrhage neonatal
     Route: 065
  3. COCAINE [Suspect]
     Active Substance: COCAINE
     Indication: Pulmonary haemorrhage neonatal
     Route: 007
  4. DEVICE [Suspect]
     Active Substance: DEVICE

REACTIONS (2)
  - Drug ineffective [Fatal]
  - Off label use [Fatal]
